FAERS Safety Report 4707893-9 (Version None)
Quarter: 2005Q3

REPORT INFORMATION
  Report Type: 
  Country: None (occurrence: None)
  Receive Date: 20050707
  Receipt Date: 20040810
  Transmission Date: 20060218
  Serious: No
  Sender: FDA-Public Use
  Company Number: US-BRISTOL-MYERS SQUIBB COMPANY-12666665

PATIENT
  Age: 75 Year
  Sex: Male
  Weight: 109 kg

DRUGS (2)
  1. SINEMET [Suspect]
     Indication: PARKINSON'S DISEASE
     Dosage: TAKEN FOR 1 1/2 YEARS.
     Route: 048
  2. DIOVAN [Concomitant]

REACTIONS (3)
  - ASTHENIA [None]
  - DISORIENTATION [None]
  - DIZZINESS [None]
